FAERS Safety Report 5978273-3 (Version None)
Quarter: 2008Q4

REPORT INFORMATION
  Report Type: 
  Country: None (occurrence: None)
  Receive Date: 20081204
  Receipt Date: 20081111
  Transmission Date: 20090506
  Serious: No
  Sender: FDA-Public Use
  Company Number: US-BAYER-200838330NA

PATIENT
  Age: 44 Year
  Sex: Female

DRUGS (2)
  1. MAGNEVIST [Suspect]
     Indication: NUCLEAR MAGNETIC RESONANCE IMAGING ABDOMINAL
     Dosage: TOTAL DAILY DOSE: 15 ML
     Dates: start: 20081107, end: 20081107
  2. CANCER MEDICATIONS [Concomitant]

REACTIONS (2)
  - ERYTHEMA [None]
  - URTICARIA [None]
